FAERS Safety Report 9685000 (Version 3)
Quarter: 2013Q4

REPORT INFORMATION
  Report Type: Spontaneous
  Country: CA (occurrence: CA)
  Receive Date: 20131113
  Receipt Date: 20131218
  Transmission Date: 20140711
  Serious: Yes (Hospitalization, Other)
  Sender: FDA-Public Use
  Company Number: CA-AMGEN-CANSP2013079047

PATIENT
  Age: 93 Year
  Sex: Female

DRUGS (6)
  1. PROLIA [Suspect]
     Indication: OSTEOPOROSIS POSTMENOPAUSAL
     Dosage: UNK
     Route: 065
     Dates: start: 20120507
  2. PLAVIX [Concomitant]
     Dosage: 75 MG, QD
     Route: 065
  3. SYNTHROID [Concomitant]
     Dosage: 100 MUG, QD
     Route: 065
  4. TECTA [Concomitant]
     Dosage: 40 MG, QD
     Route: 065
  5. TEMAZEPAM [Concomitant]
     Dosage: 30 MG, AS NECESSARY
     Route: 065
  6. CRESTOR [Concomitant]
     Dosage: 5 MG, QD
     Route: 065

REACTIONS (2)
  - Bladder transitional cell carcinoma [Not Recovered/Not Resolved]
  - Transitional cell carcinoma urethra [Not Recovered/Not Resolved]
